FAERS Safety Report 7653646-1 (Version None)
Quarter: 2011Q3

REPORT INFORMATION
  Report Type: 
  Country: None (occurrence: None)
  Receive Date: 20110803
  Receipt Date: 20110803
  Transmission Date: 20111222
  Serious: No
  Sender: FDA-Public Use
  Company Number: None

PATIENT
  Age: 37 Year
  Sex: Female
  Weight: 78.471 kg

DRUGS (1)
  1. ZEOSA [Suspect]
     Indication: IN VITRO FERTILISATION
     Dosage: 1
     Route: 048
     Dates: start: 20110721, end: 20110802

REACTIONS (5)
  - PRODUCT SUBSTITUTION ISSUE [None]
  - ERYTHEMA NODOSUM [None]
  - DYSPNOEA [None]
  - CHEST PAIN [None]
  - DEPRESSION [None]
